FAERS Safety Report 9281723 (Version 1)
Quarter: 2013Q2

REPORT INFORMATION
  Report Type: Spontaneous
  Country: GB (occurrence: GB)
  Receive Date: 20130510
  Receipt Date: 20130510
  Transmission Date: 20140414
  Serious: Yes (Other)
  Sender: FDA-Public Use
  Company Number: GB-BRISTOL-MYERS SQUIBB COMPANY-18852202

PATIENT
  Age: 18 Day
  Sex: Male

DRUGS (1)
  1. NYSTAN OS [Suspect]
     Indication: ORAL CANDIDIASIS
     Route: 048

REACTIONS (2)
  - Overdose [Unknown]
  - Drug prescribing error [Unknown]
